FAERS Safety Report 11522059 (Version 9)
Quarter: 2019Q4

REPORT INFORMATION
  Report Type: Report from Study
  Country: US (occurrence: US)
  Receive Date: 20150918
  Receipt Date: 20191022
  Transmission Date: 20200122
  Serious: Yes (Other)
  Sender: FDA-Public Use
  Company Number: US-SA-2015SA074384

PATIENT
  Age: 47 Year
  Sex: Female

DRUGS (2)
  1. ACICLOVIR [Concomitant]
     Active Substance: ACYCLOVIR
     Indication: CD8 LYMPHOCYTES DECREASED
     Dosage: 800 MG, QD
     Route: 048
     Dates: start: 20150420
  2. ALEMTUZUMAB [Suspect]
     Active Substance: ALEMTUZUMAB
     Indication: MULTIPLE SCLEROSIS
     Dosage: 12 MG,QD
     Route: 041
     Dates: start: 20150420, end: 20150424

REACTIONS (30)
  - Eye pain [Not Recovered/Not Resolved]
  - Fatigue [Unknown]
  - Rash pruritic [Unknown]
  - Hypothyroidism [Not Recovered/Not Resolved]
  - Menstruation irregular [Not Recovered/Not Resolved]
  - Blood thyroid stimulating hormone decreased [Not Recovered/Not Resolved]
  - Muscle spasms [Unknown]
  - CD4 lymphocytes decreased [Unknown]
  - Cytology abnormal [Unknown]
  - Fungal infection [Unknown]
  - Menorrhagia [Recovered/Resolved]
  - Candida infection [Unknown]
  - Hypersensitivity [Unknown]
  - Menstrual disorder [Not Recovered/Not Resolved]
  - Vitamin D abnormal [Unknown]
  - White blood cell count increased [Unknown]
  - Vision blurred [Not Recovered/Not Resolved]
  - Bone pain [Unknown]
  - Polymenorrhoea [Not Recovered/Not Resolved]
  - Neutrophil count increased [Unknown]
  - Bacterial infection [Recovered/Resolved]
  - Vaginal infection [Unknown]
  - Infection [Unknown]
  - White blood cell count decreased [Unknown]
  - Insomnia [Unknown]
  - Smear vaginal abnormal [Unknown]
  - Neurogenic bladder [Unknown]
  - Blood parathyroid hormone abnormal [Unknown]
  - Diplopia [Not Recovered/Not Resolved]
  - Madarosis [Unknown]

NARRATIVE: CASE EVENT DATE: 2015
